FAERS Safety Report 15385252 (Version 9)
Quarter: 2020Q3

REPORT INFORMATION
  Report Type: Spontaneous
  Country: US (occurrence: US)
  Receive Date: 20180914
  Receipt Date: 20200909
  Transmission Date: 20201102
  Serious: No
  Sender: FDA-Public Use
  Company Number: US-SA-2018SA256100

PATIENT

DRUGS (5)
  1. FABRAZYME [Suspect]
     Active Substance: AGALSIDASE BETA
     Dosage: 45 MG, QOW
     Route: 041
  2. FABRAZYME [Suspect]
     Active Substance: AGALSIDASE BETA
     Dosage: 45 MG, QOW
     Route: 041
     Dates: start: 2020
  3. FABRAZYME [Suspect]
     Active Substance: AGALSIDASE BETA
     Dosage: 45 MG,QOW
     Route: 042
  4. FABRAZYME [Suspect]
     Active Substance: AGALSIDASE BETA
     Dosage: 45 MG, QOW
     Route: 041
  5. FABRAZYME [Suspect]
     Active Substance: AGALSIDASE BETA
     Indication: FABRY^S DISEASE
     Dosage: 35+10 MG, QOW
     Route: 041
     Dates: start: 20160622, end: 20200420

REACTIONS (2)
  - Product dose omission issue [Unknown]
  - Illness [Unknown]
